FAERS Safety Report 5622878-6 (Version None)
Quarter: 2008Q1

REPORT INFORMATION
  Report Type: 
  Country: None (occurrence: None)
  Receive Date: 20080205
  Receipt Date: 20080125
  Transmission Date: 20080703
  Serious: Yes (Other)
  Sender: FDA-Public Use
  Company Number: 2008002474

PATIENT
  Age: 69 Year
  Sex: Female

DRUGS (1)
  1. ROGAINE [Suspect]
     Indication: ALOPECIA
     Dosage: UNSPECIFIED, TOPICAL
     Route: 061
     Dates: start: 19920101, end: 20070101

REACTIONS (3)
  - BASAL CELL CARCINOMA [None]
  - DISEASE RECURRENCE [None]
  - PORPHYRIA [None]
